FAERS Safety Report 6127779-5 (Version None)
Quarter: 2009Q1

REPORT INFORMATION
  Report Type: 
  Country: None (occurrence: None)
  Receive Date: 20090323
  Receipt Date: 20090316
  Transmission Date: 20090719
  Serious: Yes (Disabling)
  Sender: FDA-Public Use
  Company Number: GB-PURDUE-GBR_2009_0004885

PATIENT
  Age: 50 Year
  Sex: Male

DRUGS (1)
  1. HYDROMORPHONE HCL [Suspect]
     Indication: CHEST PAIN
     Dosage: 4 MG, DAILY
     Route: 065
     Dates: start: 20071101

REACTIONS (2)
  - AZOOSPERMIA [None]
  - OSTEOPOROSIS [None]
